FAERS Safety Report 15931252 (Version 1)
Quarter: 2019Q1

REPORT INFORMATION
  Report Type: Spontaneous
  Country: US (occurrence: US)
  Receive Date: 20190207
  Receipt Date: 20190207
  Transmission Date: 20190417
  Serious: Yes (Life-Threatening, Disabling)
  Sender: FDA-Public Use
  Company Number: None

PATIENT
  Age: 31 Year
  Sex: Female
  Weight: 67.5 kg

DRUGS (1)
  1. DULOXETINE HCL/CYMBALTA [Suspect]
     Active Substance: DULOXETINE
     Indication: FIBROMYALGIA
     Dosage: ?          QUANTITY:1 CAPSULE(S);?
     Route: 048
     Dates: start: 20180501, end: 20190207

REACTIONS (2)
  - Drug withdrawal syndrome [None]
  - Self-injurious ideation [None]

NARRATIVE: CASE EVENT DATE: 20190201
